FAERS Safety Report 8900815 (Version 1)
Quarter: 2012Q4

REPORT INFORMATION
  Report Type: 
  Country: US (occurrence: US)
  Receive Date: 20121109
  Receipt Date: 20121109
  Transmission Date: 20130627
  Serious: Yes (Other)
  Sender: FDA-Public Use
  Company Number: US-ROCHE-1151869

PATIENT
  Age: 40 Year
  Sex: Female

DRUGS (2)
  1. FLUMAZENIL [Suspect]
     Indication: TOXICITY TO VARIOUS AGENTS
     Route: 065
  2. DIAZEPAM [Suspect]
     Indication: PRODUCT USED FOR UNKNOWN INDICATION
     Route: 065

REACTIONS (2)
  - Convulsion [Unknown]
  - Toxicity to various agents [Unknown]
